FAERS Safety Report 7413767-5 (Version None)
Quarter: 2011Q2

REPORT INFORMATION
  Report Type: 
  Country: None (occurrence: None)
  Receive Date: 20110413
  Receipt Date: 20110405
  Transmission Date: 20111010
  Serious: Yes (Other)
  Sender: FDA-Public Use
  Company Number: PT-SANOFI-AVENTIS-2011SA020591

PATIENT
  Sex: Female

DRUGS (3)
  1. TRIMETAZIDINE [Concomitant]
     Route: 065
  2. XANAX [Concomitant]
     Route: 065
  3. PLAVIX [Suspect]
     Route: 048
     Dates: start: 20110309

REACTIONS (2)
  - SKIN EXFOLIATION [None]
  - URTICARIA [None]
